FAERS Safety Report 11072011 (Version 1)
Quarter: 2015Q2

REPORT INFORMATION
  Report Type: Spontaneous
  Country: US (occurrence: US)
  Receive Date: 20150428
  Receipt Date: 20150428
  Transmission Date: 20150821
  Serious: No
  Sender: FDA-Public Use
  Company Number: US-BAUSCH-BL-2014-003412

PATIENT
  Age: 67 Year
  Sex: Female

DRUGS (2)
  1. LOTEMAX [Suspect]
     Active Substance: LOTEPREDNOL ETABONATE
     Indication: BLISTER
     Route: 047
     Dates: start: 20140711
  2. LOTEMAX [Interacting]
     Active Substance: LOTEPREDNOL ETABONATE
     Indication: EYE SWELLING

REACTIONS (4)
  - Eye irritation [Unknown]
  - Eye pain [Unknown]
  - Intraocular pressure increased [Unknown]
  - Drug ineffective [Unknown]

NARRATIVE: CASE EVENT DATE: 20140711
